FAERS Safety Report 9280456 (Version 5)
Quarter: 2013Q4

REPORT INFORMATION
  Report Type: Spontaneous
  Country: US (occurrence: US)
  Receive Date: 20130509
  Receipt Date: 20131025
  Transmission Date: 20140711
  Serious: Yes (Hospitalization, Other)
  Sender: FDA-Public Use
  Company Number: US-BAYER-2013-055790

PATIENT
  Age: 25 Year
  Sex: Female

DRUGS (6)
  1. YASMIN [Suspect]
     Indication: PREMENSTRUAL SYNDROME
     Dosage: UNK
     Dates: start: 200110, end: 200210
  2. YASMIN [Suspect]
     Indication: CONTRACEPTION
  3. OCELLA [Suspect]
     Indication: PREMENSTRUAL SYNDROME
     Dosage: UNK
     Dates: start: 200110, end: 200210
  4. BAYER ASPIRIN REGIMEN REGULAR 325 MG STRENGTH [Suspect]
     Indication: FLATULENCE
     Dosage: 325 MG, UNK
     Dates: start: 2006
  5. BAYER ASPIRIN REGIMEN REGULAR 325 MG STRENGTH [Suspect]
     Indication: ABDOMINAL DISTENSION
  6. BAYER ASPIRIN REGIMEN REGULAR 325 MG STRENGTH [Suspect]
     Indication: BILIARY COLIC

REACTIONS (19)
  - Gallbladder disorder [None]
  - Cholelithiasis [None]
  - Irritable bowel syndrome [None]
  - Drug ineffective [None]
  - Off label use [None]
  - Abdominal distension [None]
  - Abdominal pain upper [None]
  - Flatulence [None]
  - Injury [None]
  - Pain [None]
  - Anxiety [None]
  - Anhedonia [None]
  - Fear of disease [None]
  - Gastric ulcer perforation [None]
  - Gastrointestinal disorder [None]
  - Constipation [None]
  - Diarrhoea [None]
  - Vomiting [None]
  - Post cholecystectomy syndrome [None]
